FAERS Safety Report 16189249 (Version 1)
Quarter: 2019Q2

REPORT INFORMATION
  Report Type: Spontaneous
  Country: SI (occurrence: SI)
  Receive Date: 20190412
  Receipt Date: 20190412
  Transmission Date: 20190711
  Serious: Yes (Death)
  Sender: FDA-Public Use
  Company Number: SI-TEVA-2019-SI-1035322

PATIENT
  Age: 83 Year
  Sex: Female

DRUGS (6)
  1. EXELON 13.3 MG/24 H [Concomitant]
     Indication: DEMENTIA
     Dosage: 13.3 MILLIGRAM DAILY; 13,3MG/24H PATCH
     Route: 062
  2. METHOTREXAT [Suspect]
     Active Substance: METHOTREXATE
     Indication: RHEUMATOID ARTHRITIS
     Dates: start: 2010
  3. RISPERDAL [Concomitant]
     Active Substance: RISPERIDONE
     Indication: NEUROPSYCHIATRIC SYMPTOMS
     Route: 048
  4. PROPRANOLOL [Concomitant]
     Active Substance: PROPRANOLOL HYDROCHLORIDE
     Indication: ESSENTIAL TREMOR
     Route: 048
  5. ASPIRIN 100 MG [Concomitant]
     Active Substance: ASPIRIN
     Indication: CEREBROVASCULAR ACCIDENT
     Route: 048
  6. EUTHYROX 100 MCG TAB [Concomitant]
     Indication: HYPOTHYROIDISM
     Route: 048

REACTIONS (3)
  - Sepsis [Fatal]
  - Haematochezia [Fatal]
  - Pancytopenia [Fatal]

NARRATIVE: CASE EVENT DATE: 2019
